FAERS Safety Report 7989460-7 (Version None)
Quarter: 2011Q4

REPORT INFORMATION
  Report Type: 
  Country: None (occurrence: None)
  Receive Date: 20111219
  Receipt Date: 20111205
  Transmission Date: 20120403
  Serious: Yes (Other)
  Sender: FDA-Public Use
  Company Number: JP-ASTELLAS-2011US008438

PATIENT
  Age: 78 Year
  Sex: Male

DRUGS (1)
  1. AMBISOME [Suspect]
     Indication: CANDIDIASIS
     Dosage: 150 MG, UID/QD
     Route: 065

REACTIONS (1)
  - CEREBRAL INFARCTION [None]
